FAERS Safety Report 14701766 (Version 1)
Quarter: 2018Q1

REPORT INFORMATION
  Report Type: Spontaneous
  Country: ES (occurrence: ES)
  Receive Date: 20180331
  Receipt Date: 20180331
  Transmission Date: 20180509
  Serious: Yes (Other)
  Sender: FDA-Public Use
  Company Number: ES-AUROBINDO-AUR-APL-2018-017121

PATIENT
  Age: 49 Year
  Sex: Male

DRUGS (2)
  1. PRAVAFENIX [Concomitant]
     Active Substance: FENOFIBRATE\PRAVASTATIN
     Indication: HYPERTRIGLYCERIDAEMIA
     Dosage: 1 COMP, 1 VEZ AL D?A ()
     Route: 048
     Dates: start: 20151109
  2. PARACETAMOL [Suspect]
     Active Substance: ACETAMINOPHEN
     Indication: CATARRH
     Dosage: 650 MG, 3 VECES AL D?A
     Route: 048
     Dates: start: 20180206, end: 20180213

REACTIONS (2)
  - Hypocoagulable state [Recovered/Resolved]
  - Hepatitis [Recovered/Resolved]

NARRATIVE: CASE EVENT DATE: 20180213
